FAERS Safety Report 4632885-8 (Version None)
Quarter: 2005Q2

REPORT INFORMATION
  Report Type: 
  Country: None (occurrence: None)
  Receive Date: 20050411
  Receipt Date: 20050411
  Transmission Date: 20051028
  Serious: Yes (Disabling)
  Sender: FDA-Public Use
  Company Number: None

PATIENT
  Age: 34 Year
  Sex: Female

DRUGS (8)
  1. AVELOX [Suspect]
     Indication: BRONCHITIS
     Dosage: 400 MG QD X 10 DAY
     Dates: start: 20050324, end: 20050402
  2. AVELOX [Suspect]
     Indication: SINUSITIS
     Dosage: 400 MG QD X 10 DAY
     Dates: start: 20050324, end: 20050402
  3. TRAZODONE HCL [Concomitant]
  4. BUSPAR [Concomitant]
  5. SINGULAIR [Concomitant]
  6. ADVAIR DISKUS 100/50 [Concomitant]
  7. SPIRIVA [Concomitant]
  8. PULMICORT [Concomitant]

REACTIONS (1)
  - DYSGEUSIA [None]
